FAERS Safety Report 9192313 (Version 1)
Quarter: 2013Q1

REPORT INFORMATION
  Report Type: Spontaneous
  Country: GB (occurrence: GB)
  Receive Date: 20130327
  Receipt Date: 20130327
  Transmission Date: 20140127
  Serious: Yes (Other)
  Sender: FDA-Public Use
  Company Number: GB-JNJFOC-20130314261

PATIENT
  Age: 62 Year
  Sex: Male
  Weight: 69.85 kg

DRUGS (1)
  1. NICORETTE QUICKMIST [Suspect]
     Indication: SMOKING CESSATION THERAPY
     Route: 002
     Dates: start: 20130301, end: 20130311

REACTIONS (3)
  - Oral disorder [Not Recovered/Not Resolved]
  - Oropharyngeal pain [Unknown]
  - Lip and/or oral cavity cancer [None]
